FAERS Safety Report 8494205-0 (Version None)
Quarter: 2012Q3

REPORT INFORMATION
  Report Type: 
  Country: None (occurrence: None)
  Receive Date: 20120709
  Receipt Date: 20120704
  Transmission Date: 20120928
  Serious: Yes (Other)
  Sender: FDA-Public Use
  Company Number: PHHY2011BE100698

PATIENT
  Sex: Female
  Weight: 53 kg

DRUGS (2)
  1. EXTAVIA [Suspect]
     Indication: MULTIPLE SCLEROSIS
     Dosage: 250 UG, EVERY 2 DAY
     Dates: start: 20100216
  2. EXTAVIA [Suspect]
     Dosage: 250 UG, EVERY 2 DAY
     Dates: start: 20120101

REACTIONS (6)
  - POSTPARTUM HAEMORRHAGE [None]
  - HELLP SYNDROME [None]
  - NORMAL NEWBORN [None]
  - PRE-ECLAMPSIA [None]
  - INJECTION SITE ERYTHEMA [None]
  - MATERNAL EXPOSURE DURING PREGNANCY [None]
